FAERS Safety Report 6142715-3 (Version None)
Quarter: 2009Q2

REPORT INFORMATION
  Report Type: 
  Country: None (occurrence: None)
  Receive Date: 20090403
  Receipt Date: 20090331
  Transmission Date: 20091009
  Serious: No
  Sender: FDA-Public Use
  Company Number: US-B.I. PHARMACEUTICALS,INC./RIDGEFIELD-2009-BP-04093BP

PATIENT
  Sex: Male

DRUGS (6)
  1. SPIRIVA [Suspect]
     Indication: CHRONIC OBSTRUCTIVE PULMONARY DISEASE
     Dosage: 18MCG
     Route: 055
     Dates: start: 20080801
  2. DIGOXIN [Concomitant]
     Indication: CARDIAC DISORDER
     Dosage: .125MG
     Route: 048
     Dates: start: 19940101
  3. METOPROLOL [Concomitant]
     Indication: HYPERTENSION
     Dosage: 100MG
     Route: 048
     Dates: start: 19800101
  4. COUMADIN [Concomitant]
     Indication: ANTICOAGULANT THERAPY
     Route: 048
     Dates: start: 19940101
  5. SIMVASTATIN [Concomitant]
     Indication: BLOOD CHOLESTEROL
     Dosage: 10MG
     Route: 048
     Dates: start: 20020101
  6. NITROGLYCERIN [Concomitant]
     Indication: PROPHYLAXIS
     Route: 060
     Dates: start: 19900101

REACTIONS (1)
  - DRY MOUTH [None]
